FAERS Safety Report 5039717-7 (Version None)
Quarter: 2006Q2

REPORT INFORMATION
  Report Type: 
  Country: None (occurrence: None)
  Receive Date: 20060601
  Receipt Date: 20060106
  Transmission Date: 20061013
  Serious: No
  Sender: FDA-Public Use
  Company Number: 2006PV006715

PATIENT
  Age: 70 Year
  Sex: Male
  Weight: 86.637 kg

DRUGS (4)
  1. BYETTA [Suspect]
     Indication: DIABETES MELLITUS NON-INSULIN-DEPENDENT
     Dosage: 5 MCG;BID;SC
     Route: 058
     Dates: start: 20051008
  2. AMARYL [Concomitant]
  3. AVANDIA [Concomitant]
  4. GLUCOPHAGE [Concomitant]

REACTIONS (5)
  - ACCIDENT [None]
  - BLOOD GLUCOSE INCREASED [None]
  - CONTUSION [None]
  - INFLUENZA [None]
  - NAUSEA [None]
